FAERS Safety Report 19609671 (Version 12)
Quarter: 2022Q1

REPORT INFORMATION
  Report Type: Report from Study
  Country: KR (occurrence: None)
  Receive Date: 20210726
  Receipt Date: 20220324
  Transmission Date: 20220424
  Serious: Yes (Hospitalization)
  Sender: FDA-Public Use
  Company Number: KR-ROCHE-2862354

PATIENT
  Age: 69 Year
  Sex: Male
  Weight: 50.85 kg

DRUGS (16)
  1. TIRAGOLUMAB [Suspect]
     Active Substance: TIRAGOLUMAB
     Indication: Small cell lung cancer extensive stage
     Dosage: DATE OF MOST RECENT DOSE OF STUDY DRUG PRIOR TO SAE: 17/MAY/2021
     Route: 042
     Dates: start: 20200420
  2. ATEZOLIZUMAB [Suspect]
     Active Substance: ATEZOLIZUMAB
     Indication: Small cell lung cancer extensive stage
     Dosage: DATE OF MOST RECENT DOSE OF STUDY DRUG PRIOR TO SAE: 17/MAY/2021
     Route: 042
     Dates: start: 20200420
  3. CARBOPLATIN [Suspect]
     Active Substance: CARBOPLATIN
     Indication: Small cell lung cancer extensive stage
     Dosage: DATE OF MOST RECENT DOSE OF STUDY DRUG PRIOR TO SAE: 24/JUN/2021?DOSE LAST STUDY DRUG ADMIN PRIOR AE
     Route: 042
     Dates: start: 20200420
  4. ETOPOSIDE [Suspect]
     Active Substance: ETOPOSIDE
     Indication: Small cell lung cancer extensive stage
     Dosage: DATE OF MOST RECENT DOSE OF STUDY DRUG PRIOR TO SAE: 26/JUN/2020.
     Route: 042
     Dates: start: 20200420
  5. CRESNON [Concomitant]
     Indication: Dyslipidaemia
     Route: 048
     Dates: start: 20200329
  6. DETHASONE [Concomitant]
     Indication: Rash
     Route: 061
     Dates: start: 20200916
  7. TOPISOL MILK LOTION [Concomitant]
     Indication: Rash
     Route: 061
     Dates: start: 20201022
  8. STELLA [Concomitant]
     Indication: Rash
     Route: 048
     Dates: start: 20210118
  9. HYDROXYZINE HYDROCHLORIDE [Concomitant]
     Active Substance: HYDROXYZINE HYDROCHLORIDE
     Indication: Rash
     Route: 048
     Dates: start: 20210222, end: 20210607
  10. HYDROXYZINE HYDROCHLORIDE [Concomitant]
     Active Substance: HYDROXYZINE HYDROCHLORIDE
     Indication: Pruritus
  11. PANTOPRAZOLE SODIUM [Concomitant]
     Active Substance: PANTOPRAZOLE SODIUM
     Indication: Prophylaxis
     Route: 048
     Dates: start: 20210222
  12. PANTOPRAZOLE SODIUM [Concomitant]
     Active Substance: PANTOPRAZOLE SODIUM
     Route: 042
     Dates: start: 20210705, end: 20210707
  13. PANTOPRAZOLE SODIUM [Concomitant]
     Active Substance: PANTOPRAZOLE SODIUM
     Route: 048
     Dates: start: 20210719
  14. EBASTINE [Concomitant]
     Active Substance: EBASTINE
     Indication: Rash
     Route: 048
     Dates: start: 20210118, end: 20210607
  15. EBASTINE [Concomitant]
     Active Substance: EBASTINE
     Indication: Pruritus
  16. SYNACTHENE [Concomitant]
     Dosage: 1 AMPULE
     Route: 042
     Dates: start: 20210702, end: 20210702

REACTIONS (1)
  - Adrenal insufficiency [Not Recovered/Not Resolved]

NARRATIVE: CASE EVENT DATE: 20210701
